FAERS Safety Report 16500182 (Version 6)
Quarter: 2020Q2

REPORT INFORMATION
  Report Type: Spontaneous
  Country: AT (occurrence: AT)
  Receive Date: 20190701
  Receipt Date: 20200605
  Transmission Date: 20200713
  Serious: Yes (Hospitalization, Other)
  Sender: FDA-Public Use
  Company Number: AT-AMGEN-AUTNI2019101704

PATIENT
  Age: 62 Year
  Sex: Female
  Weight: 80 kg

DRUGS (51)
  1. LASIX [Concomitant]
     Active Substance: FUROSEMIDE
     Dosage: UNK
     Route: 065
     Dates: start: 20190907
  2. LIXIANA [Concomitant]
     Active Substance: EDOXABAN TOSYLATE
     Indication: PULMONARY EMBOLISM
     Dosage: UNK
     Route: 065
     Dates: start: 20190315
  3. XELODA [Suspect]
     Active Substance: CAPECITABINE
     Indication: HER2 POSITIVE BREAST CANCER
     Dosage: 3500 UNK, QD
     Route: 048
     Dates: start: 20180904
  4. NOVALGIN (METAMIZOLE SODIUM) [Concomitant]
     Active Substance: METAMIZOLE SODIUM
     Indication: BACK PAIN
     Dosage: UNK
     Route: 065
     Dates: start: 20170327
  5. HYDAL [Concomitant]
     Active Substance: HYDROMORPHONE HYDROCHLORIDE
     Dosage: UNK
     Route: 065
     Dates: start: 20180628, end: 20190226
  6. SOLU-DACORTIN [Concomitant]
     Active Substance: PREDNISOLONE SODIUM SUCCINATE
     Indication: CHILLS
     Dosage: UNK
     Route: 065
     Dates: start: 20170306, end: 20170306
  7. AMOXICILLIN;CLAVULANATE POTASSIUM [Concomitant]
     Active Substance: AMOXICILLIN\CLAVULANATE POTASSIUM
     Indication: VASCULAR DEVICE INFECTION
     Dosage: UNK
     Route: 065
     Dates: start: 20180215, end: 20180215
  8. KYTRIL [Concomitant]
     Active Substance: GRANISETRON HYDROCHLORIDE
     Dosage: UNK
     Route: 065
     Dates: start: 20171212, end: 20180813
  9. KALIORAL [CITRIC ACID;POTASSIUM BICARBONATE;POTASSIUM CITRATE] [Concomitant]
     Dosage: UNK
  10. PERTUZUMAB. [Suspect]
     Active Substance: PERTUZUMAB
     Indication: HER2 POSITIVE BREAST CANCER
     Dosage: RECEIVED DOSE ON 21/NOV/2017
     Route: 042
     Dates: start: 20170306
  11. NOVALGIN (METAMIZOLE SODIUM) [Concomitant]
     Active Substance: METAMIZOLE SODIUM
     Indication: HEPATIC PAIN
     Dosage: UNK
     Route: 065
     Dates: start: 20171212, end: 20190907
  12. FORTECORTIN [DEXAMETHASONE] [Concomitant]
     Active Substance: DEXAMETHASONE
     Dosage: UNK
     Route: 065
     Dates: start: 20190215
  13. HYDAL [Concomitant]
     Active Substance: HYDROMORPHONE HYDROCHLORIDE
     Indication: BACK PAIN
     Dosage: UNK
     Route: 065
     Dates: start: 20180403, end: 20180628
  14. HYDAL [Concomitant]
     Active Substance: HYDROMORPHONE HYDROCHLORIDE
     Dosage: UNK
     Route: 065
     Dates: start: 20181227, end: 20190907
  15. TRITTICO [Concomitant]
     Active Substance: TRAZODONE HYDROCHLORIDE
     Dosage: UNK
     Route: 065
  16. LOVENOX [Concomitant]
     Active Substance: ENOXAPARIN SODIUM
     Dosage: UNK
     Route: 065
     Dates: start: 20190312, end: 20190315
  17. EMEND [Concomitant]
     Active Substance: APREPITANT
     Dosage: UNK
     Route: 065
     Dates: start: 20180127, end: 20180815
  18. ULSAL [Concomitant]
     Active Substance: RANITIDINE HYDROCHLORIDE
     Dosage: UNK
     Route: 065
     Dates: start: 20170327, end: 20180813
  19. AUGMENTIN [Concomitant]
     Active Substance: AMOXICILLIN\CLAVULANATE POTASSIUM
     Indication: RESPIRATORY TRACT INFECTION
     Dosage: UNK
     Route: 065
     Dates: start: 20190509, end: 20190516
  20. BAMBEC [Concomitant]
     Active Substance: BAMBUTEROL HYDROCHLORIDE
     Dosage: UNK
     Route: 065
  21. DAFLON [DIOSMIN;HESPERIDIN] [Concomitant]
     Active Substance: DIOSMIN\HESPERIDIN
     Dosage: UNK
     Dates: start: 20171212, end: 20190907
  22. FENISTIL [Concomitant]
     Active Substance: DIMETHINDENE
     Indication: CHILLS
     Dosage: UNK
     Route: 065
     Dates: start: 20170306, end: 20170306
  23. MEXALEN [Concomitant]
     Active Substance: ACETAMINOPHEN
     Dosage: UNK
     Route: 065
     Dates: start: 20170327, end: 20170327
  24. NOVALGIN (METAMIZOLE SODIUM) [Concomitant]
     Active Substance: METAMIZOLE SODIUM
     Indication: BACK PAIN
     Dosage: UNK
     Route: 065
     Dates: start: 20190315
  25. SUCRALFAT [Concomitant]
     Active Substance: SUCRALFATE
     Dosage: UNK
     Route: 065
     Dates: start: 20190907
  26. LYRICA [Concomitant]
     Active Substance: PREGABALIN
     Indication: BACK PAIN
     Dosage: UNK
     Route: 065
     Dates: start: 20181227, end: 20190226
  27. DEXAMETHASONE. [Concomitant]
     Active Substance: DEXAMETHASONE
     Dosage: UNK
     Route: 065
     Dates: start: 20170829, end: 20180813
  28. FENISTIL [Concomitant]
     Active Substance: DIMETHINDENE
     Dosage: UNK
     Route: 065
     Dates: start: 20170327, end: 20180313
  29. PARACODIN [DIHYDROCODEINE] [Concomitant]
     Dosage: UNK
     Dates: start: 20171212, end: 20180115
  30. BUPRENORPHINE. [Concomitant]
     Active Substance: BUPRENORPHINE
     Dosage: UNK
     Route: 065
  31. ZYRTEC [Concomitant]
     Active Substance: CETIRIZINE HYDROCHLORIDE
     Indication: PRURITUS
     Dates: start: 20170327, end: 20171215
  32. TRASTUZUMAB. [Suspect]
     Active Substance: TRASTUZUMAB
     Indication: HER2 POSITIVE BREAST CANCER
     Dosage: RECEIVED DOSE ON 21/NOV/2017, MOST RECENT DOSE PRIOR TO THE EVENT: 27/MAY/2019
     Route: 042
     Dates: start: 20170306
  33. NAVELBINE [Suspect]
     Active Substance: VINORELBINE TARTRATE
     Indication: HER2 POSITIVE BREAST CANCER
     Dosage: FREQUENCY: OTHER, RECEIVED DOSE ON 30/MAY/2017, MOST RECENT DOSE PRIOR TO THE EVENT: 27/JUN/2017
     Route: 048
     Dates: start: 20170306
  34. FORTECORTIN [DEXAMETHASONE] [Concomitant]
     Active Substance: DEXAMETHASONE
     Dosage: UNK
     Route: 065
     Dates: start: 20170829, end: 20180813
  35. LOVENOX [Concomitant]
     Active Substance: ENOXAPARIN SODIUM
     Dosage: UNK
     Route: 065
     Dates: start: 20180126, end: 20180208
  36. VENLAFAB [Concomitant]
     Active Substance: VENLAFAXINE HYDROCHLORIDE
     Dosage: UNK
     Route: 065
     Dates: start: 20190315, end: 20190907
  37. FORTECORTIN [DEXAMETHASONE] [Concomitant]
     Active Substance: DEXAMETHASONE
     Dosage: UNK
     Route: 065
     Dates: start: 20180127, end: 20180313
  38. PASPERTIN [METOCLOPRAMIDE HYDROCHLORIDE] [Concomitant]
     Active Substance: METOCLOPRAMIDE HYDROCHLORIDE
     Dosage: ONGOING = CHECKED
     Route: 065
     Dates: start: 20171212
  39. CONCOR COR [Concomitant]
     Active Substance: BISOPROLOL FUMARATE
     Dosage: UNK
     Route: 065
  40. LAEVOLAC [Concomitant]
     Active Substance: LACTULOSE
     Dosage: UNK
     Route: 065
     Dates: start: 20171212, end: 20191107
  41. ZOLPIDEM [Concomitant]
     Active Substance: ZOLPIDEM TARTRATE
     Dosage: UNK
     Route: 065
     Dates: start: 20190215, end: 20190315
  42. ULSAL [Concomitant]
     Active Substance: RANITIDINE HYDROCHLORIDE
     Indication: CHILLS
     Dosage: UNK
     Route: 065
     Dates: start: 20170306, end: 20170306
  43. TRASTUZUMAB EMTANSINE [Suspect]
     Active Substance: ADO-TRASTUZUMAB EMTANSINE
     Indication: HER2 POSITIVE BREAST CANCER
     Dosage: RECEIVED ON 24/APR/2018,  MOST RECENT DOSE PRIOR TO THE EVENT: 15/MAY/2018
     Route: 042
     Dates: start: 20171212
  44. NOVALGIN (METAMIZOLE SODIUM) [Concomitant]
     Active Substance: METAMIZOLE SODIUM
     Indication: RESPIRATORY TRACT INFECTION
     Dosage: UNK
     Route: 065
     Dates: start: 20190509, end: 20190509
  45. NOVALGIN (METAMIZOLE SODIUM) [Concomitant]
     Active Substance: METAMIZOLE SODIUM
     Dosage: UNK
     Route: 065
     Dates: start: 20190615, end: 20190615
  46. TEMESTA [LORAZEPAM] [Concomitant]
     Active Substance: LORAZEPAM
     Dosage: UNK
     Route: 065
     Dates: start: 20190226
  47. PANTOLOC [PANTOPRAZOLE] [Concomitant]
     Active Substance: PANTOPRAZOLE SODIUM
     Dosage: UNK
     Route: 065
     Dates: start: 20170302
  48. MIRTAZAPIN [Concomitant]
     Active Substance: MIRTAZAPINE
     Dosage: UNK
     Route: 065
     Dates: start: 20190315
  49. PARACODIN [DIHYDROCODEINE] [Concomitant]
     Indication: COUGH
     Dosage: UNK
     Dates: start: 20190510
  50. ZYRTEC [Concomitant]
     Active Substance: CETIRIZINE HYDROCHLORIDE
     Indication: PRURITUS
     Dosage: UNK
     Route: 065
     Dates: start: 20170327, end: 20171215
  51. DOXYCYCLINE. [Concomitant]
     Active Substance: DOXYCYCLINE
     Indication: RESPIRATORY TRACT INFECTION
     Dosage: UNK
     Route: 065
     Dates: start: 20190502, end: 20190509

REACTIONS (5)
  - Respiratory tract infection [Recovered/Resolved]
  - Cough [Not Recovered/Not Resolved]
  - Off label use [Unknown]
  - Dyspnoea [Recovered/Resolved]
  - Dyspnoea [Not Recovered/Not Resolved]

NARRATIVE: CASE EVENT DATE: 20190415
